FAERS Safety Report 21690187 (Version 3)
Quarter: 2022Q4

REPORT INFORMATION
  Report Type: Spontaneous
  Country: CH (occurrence: CH)
  Receive Date: 20221206
  Receipt Date: 20221222
  Transmission Date: 20230112
  Serious: Yes (Other)
  Sender: FDA-Public Use
  Company Number: CH-BoehringerIngelheim-2022-BI-205568

PATIENT
  Age: 48 Year
  Sex: Male

DRUGS (3)
  1. VIRAMUNE [Suspect]
     Active Substance: NEVIRAPINE
     Indication: Product used for unknown indication
  2. LAMIVUDINE [Concomitant]
     Active Substance: LAMIVUDINE
     Indication: Product used for unknown indication
     Dates: start: 2010
  3. VIREAD [Concomitant]
     Active Substance: TENOFOVIR DISOPROXIL FUMARATE
     Indication: Product used for unknown indication
     Dates: start: 2010

REACTIONS (6)
  - Ophthalmoplegia [Not Recovered/Not Resolved]
  - Ophthalmoplegia [Recovered/Resolved]
  - Headache [Not Recovered/Not Resolved]
  - Muscle strain [Not Recovered/Not Resolved]
  - Headache [Recovered/Resolved]
  - Muscle strain [Recovered/Resolved]

NARRATIVE: CASE EVENT DATE: 20220909
